FAERS Safety Report 24694465 (Version 1)
Quarter: 2024Q4

REPORT INFORMATION
  Report Type: Spontaneous
  Country: BR (occurrence: BR)
  Receive Date: 20241204
  Receipt Date: 20241204
  Transmission Date: 20250115
  Serious: Yes (Other)
  Sender: SUNOVION
  Company Number: BR-SMPA-2024SPA005765

PATIENT

DRUGS (9)
  1. LATUDA [Suspect]
     Active Substance: LURASIDONE HYDROCHLORIDE
     Indication: Bipolar disorder
     Dosage: 20 MG, QD
     Route: 048
     Dates: start: 202402, end: 202405
  2. LATUDA [Suspect]
     Active Substance: LURASIDONE HYDROCHLORIDE
     Dosage: 20 MG, QD
     Route: 048
     Dates: start: 202409
  3. GABAPENTIN [Concomitant]
     Active Substance: GABAPENTIN
     Dosage: 300 MG
     Route: 065
     Dates: start: 2021
  4. BENSERAZIDE\LEVODOPA [Concomitant]
     Active Substance: BENSERAZIDE\LEVODOPA
     Dosage: 100 MG
     Route: 065
     Dates: start: 202310
  5. ENTACAPONE [Concomitant]
     Active Substance: ENTACAPONE
     Dosage: 200 MG
     Route: 065
     Dates: start: 202310
  6. METFORMIN HYDROCHLORIDE [Concomitant]
     Active Substance: METFORMIN HYDROCHLORIDE
     Dosage: 500 MG
     Route: 065
     Dates: start: 2004
  7. QUETIAPINE [Concomitant]
     Active Substance: QUETIAPINE
     Dosage: UNK
     Route: 065
     Dates: start: 202409
  8. RASAGILINE [Concomitant]
     Active Substance: RASAGILINE
     Dosage: UNK
     Route: 065
     Dates: start: 2020
  9. Iccor [Concomitant]
     Dosage: 5 MG
     Dates: start: 202211

REACTIONS (6)
  - Psychotic disorder [Recovered/Resolved]
  - Psychotic disorder [Recovered/Resolved]
  - Euphoric mood [Recovering/Resolving]
  - Thinking abnormal [Recovering/Resolving]
  - Confusional state [Recovering/Resolving]
  - Irritability [Recovering/Resolving]

NARRATIVE: CASE EVENT DATE: 20240301
